FAERS Safety Report 6543861-2 (Version None)
Quarter: 2010Q1

REPORT INFORMATION
  Report Type: 
  Country: None (occurrence: None)
  Receive Date: 20100119
  Receipt Date: 20100119
  Transmission Date: 20100710
  Serious: Yes (Hospitalization)
  Sender: FDA-Public Use
  Company Number: None

PATIENT
  Age: 45 Year
  Sex: Male
  Weight: 79.3795 kg

DRUGS (2)
  1. ROLAIDS ORIGINAL [Suspect]
     Indication: DYSPEPSIA
     Dosage: 12 DAILY PO
     Route: 048
     Dates: start: 20080101, end: 20100110
  2. ROLAIDS ORIGINAL [Suspect]

REACTIONS (9)
  - ABDOMINAL DISTENSION [None]
  - ABDOMINAL PAIN UPPER [None]
  - GASTRIC DISORDER [None]
  - GASTROINTESTINAL MOTILITY DISORDER [None]
  - GLOSSODYNIA [None]
  - NAUSEA [None]
  - POOR QUALITY DRUG ADMINISTERED [None]
  - PRODUCT QUALITY ISSUE [None]
  - THROAT IRRITATION [None]
